FAERS Safety Report 17102361 (Version 1)
Quarter: 2019Q4

REPORT INFORMATION
  Report Type: Spontaneous
  Country: US (occurrence: US)
  Receive Date: 20191106
  Receipt Date: 20191106
  Transmission Date: 20200122
  Serious: No
  Sender: FDA-Public Use
  Company Number: None

PATIENT

DRUGS (1)
  1. TIGAN [Suspect]
     Active Substance: TRIMETHOBENZAMIDE HYDROCHLORIDE

REACTIONS (4)
  - Product administered at inappropriate site [None]
  - Wrong technique in product usage process [None]
  - Pain in extremity [None]
  - Drug ineffective [None]
